FAERS Safety Report 5717190-0 (Version None)
Quarter: 2008Q2

REPORT INFORMATION
  Report Type: 
  Country: None (occurrence: None)
  Receive Date: 20080423
  Receipt Date: 20080417
  Transmission Date: 20081010
  Serious: No
  Sender: FDA-Public Use
  Company Number: DSU-2008-00560

PATIENT
  Age: 59 Year
  Sex: Female
  Weight: 62.5964 kg

DRUGS (4)
  1. WELCHOL [Suspect]
     Indication: DRUG USE FOR UNKNOWN INDICATION
     Dosage: 2500 MG (1250 MG, BID) PER ORAL
     Route: 048
     Dates: start: 20080101
  2. BENICAR [Concomitant]
  3. ZYRTEC [Concomitant]
  4. UNSPECIFIED MEDICATION FOR HYPERTENSION (ANTIHYPERTENSIVES) [Concomitant]

REACTIONS (3)
  - DYSPHAGIA [None]
  - PHARMACEUTICAL PRODUCT COMPLAINT [None]
  - WEIGHT INCREASED [None]
